FAERS Safety Report 10141269 (Version 1)
Quarter: 2014Q2

REPORT INFORMATION
  Report Type: Spontaneous
  Country: BR (occurrence: BR)
  Receive Date: 20140429
  Receipt Date: 20140429
  Transmission Date: 20141212
  Serious: Yes (Hospitalization, Other)
  Sender: FDA-Public Use
  Company Number: BR-ELI_LILLY_AND_COMPANY-BR201404007591

PATIENT
  Sex: Male
  Weight: 90 kg

DRUGS (1)
  1. HUMULIN N [Suspect]
     Indication: DIABETES MELLITUS
     Dosage: UNK, TID
     Route: 058
     Dates: start: 2007

REACTIONS (9)
  - Chest pain [Unknown]
  - Cerebrovascular accident [Unknown]
  - Eye haemorrhage [Unknown]
  - Blindness unilateral [Not Recovered/Not Resolved]
  - Arrhythmia [Unknown]
  - Blood pressure increased [Unknown]
  - Dizziness [Unknown]
  - Sluggishness [Unknown]
  - Blood glucose decreased [Recovered/Resolved]
